FAERS Safety Report 20428252 (Version 1)
Quarter: 2022Q1

REPORT INFORMATION
  Report Type: Spontaneous
  Country: US (occurrence: US)
  Receive Date: 20220204
  Receipt Date: 20220204
  Transmission Date: 20220423
  Serious: No
  Sender: FDA-Public Use
  Company Number: US-AMGEN-USASP2022015746

PATIENT
  Sex: Male

DRUGS (1)
  1. REPATHA [Suspect]
     Active Substance: EVOLOCUMAB
     Indication: Osteoarthritis
     Dosage: 140 MILLIGRAM, Q2WK
     Route: 058

REACTIONS (2)
  - Surgery [Unknown]
  - Off label use [Unknown]
